FAERS Safety Report 7909994-0 (Version None)
Quarter: 2011Q4

REPORT INFORMATION
  Report Type: 
  Country: None (occurrence: None)
  Receive Date: 20111111
  Receipt Date: 20111108
  Transmission Date: 20120403
  Serious: Yes (Death)
  Sender: FDA-Public Use
  Company Number: US-CELGENEUS-163-21880-11092028

PATIENT
  Sex: Male

DRUGS (7)
  1. REVLIMID [Suspect]
     Indication: MULTIPLE MYELOMA
     Dosage: 25 MILLIGRAM
     Route: 048
     Dates: start: 20101101
  2. COUMADIN [Concomitant]
     Dosage: 2.5 MILLIGRAM
     Route: 065
  3. SYNTHROID [Concomitant]
     Dosage: 50 MILLIGRAM
     Route: 065
  4. CELEXA [Concomitant]
     Dosage: 20 MILLIGRAM
     Route: 065
  5. LISINOPRIL [Concomitant]
     Dosage: 2.5 MILLIGRAM
     Route: 065
  6. REVLIMID [Suspect]
     Dosage: 10 MILLIGRAM
     Route: 048
     Dates: start: 20110301, end: 20110901
  7. FOLIC ACID [Concomitant]
     Dosage: 1 MILLIGRAM
     Route: 065

REACTIONS (2)
  - MYOCARDIAL INFARCTION [None]
  - THROMBOCYTOPENIA [None]
